FAERS Safety Report 18649484 (Version 4)
Quarter: 2021Q2

REPORT INFORMATION
  Report Type: Other
  Country: US (occurrence: US)
  Receive Date: 20201222
  Receipt Date: 20210510
  Transmission Date: 20210717
  Serious: Yes (Hospitalization, Other)
  Sender: FDA-Public Use
  Company Number: US-INTERCEPT-PM2020002545

PATIENT
  Age: 72 Year
  Sex: Female

DRUGS (33)
  1. FLONASE [Concomitant]
     Active Substance: FLUTICASONE PROPIONATE
     Indication: RHINORRHOEA
     Dosage: UNK, QD
  2. CO ENZYME Q10 [UBIDECARENONE] [Concomitant]
  3. VITAMIN E?400 [Concomitant]
     Dosage: 400 INTERNATIONAL UNIT, BID
     Route: 048
  4. MIRALAX [Concomitant]
     Active Substance: POLYETHYLENE GLYCOL 3350
     Indication: CONSTIPATION
     Dosage: UNK
  5. SLOW?MAG [Concomitant]
     Active Substance: MAGNESIUM CHLORIDE
     Dosage: 143 MILLIGRAM, BID
     Route: 048
  6. SODIUM BICARBONATE. [Concomitant]
     Active Substance: SODIUM BICARBONATE
     Dosage: 325 MILLIGRAM, TID
     Route: 048
  7. ASPIRIN BAYER [Concomitant]
     Active Substance: ASPIRIN
     Dosage: 81 MILLIGRAM, QD
     Route: 048
  8. COD?LIVER OIL;ZINC OXIDE [Concomitant]
     Indication: SKIN ABRASION
     Dosage: UNK, BID
     Route: 061
  9. ZYLOPRIM [Concomitant]
     Active Substance: ALLOPURINOL
     Dosage: 300 MILLIGRAM, QD
     Route: 048
  10. VITAMIN B12 [Concomitant]
     Active Substance: CYANOCOBALAMIN
  11. OSCAL [Concomitant]
     Active Substance: CALCIUM CARBONATE
     Dosage: 500 MILLIGRAM, QD
     Route: 048
  12. ANUSOL HC [Concomitant]
     Active Substance: HYDROCORTISONE
     Indication: PRURITUS
     Dosage: 25 MILLIGRAM, BID
     Route: 054
  13. ZOFRAN [Concomitant]
     Active Substance: ONDANSETRON HYDROCHLORIDE
     Dosage: UNK
  14. VITAMIN C [Concomitant]
     Active Substance: ASCORBIC ACID
     Dosage: 500 MILLIGRAM, QD
     Route: 048
  15. FERROUS SULFATE. [Concomitant]
     Active Substance: FERROUS SULFATE
     Dosage: 142 MILLIGRAM, TID
     Route: 048
  16. SUPREP BOWEL PREP [Concomitant]
     Active Substance: MAGNESIUM SULFATE\POTASSIUM SULFATE\SODIUM SULFATE
  17. GLUCOSAMINE + CHONDROITIN SULFATE [Concomitant]
     Active Substance: CHONDROITIN SULFATE (BOVINE)\GLUCOSAMINE SULFATE
  18. LASIX [Concomitant]
     Active Substance: FUROSEMIDE
     Indication: CHRONIC KIDNEY DISEASE
     Dosage: 20 MILLIGRAM, QD
     Route: 048
  19. NORVASC [Concomitant]
     Active Substance: AMLODIPINE BESYLATE
     Dosage: 10 MILLIGRAM, QD
     Route: 048
  20. ZYRTEC [Concomitant]
     Active Substance: CETIRIZINE HYDROCHLORIDE
     Dosage: 10 MILLIGRAM, QD
     Route: 048
  21. TRELEGY ELLIPTA [Concomitant]
     Active Substance: FLUTICASONE FUROATE\UMECLIDINIUM BROMIDE\VILANTEROL TRIFENATATE
     Dosage: UNK, QD
  22. METHYLSULFONYLMETHANE [Concomitant]
     Active Substance: DIMETHYL SULFONE
     Dosage: UNK
  23. OCALIVA [Suspect]
     Active Substance: OBETICHOLIC ACID
     Indication: PRIMARY BILIARY CHOLANGITIS
     Dosage: 5 MILLIGRAM, QD
     Route: 048
     Dates: start: 20201013, end: 20201121
  24. ACTIGALL [Concomitant]
     Active Substance: URSODIOL
     Dosage: 1500 MILLIGRAM, QD
     Route: 048
  25. MYCOSTATIN [Concomitant]
     Active Substance: NYSTATIN
     Indication: SKIN CANDIDA
     Dosage: UNK, BID
     Route: 061
  26. LOTRIMIN AF [CLOTRIMAZOLE] [Concomitant]
     Indication: FUNGAL SKIN INFECTION
     Dosage: UNK, BID
     Route: 061
  27. OMEGA 3 FISH OIL [FISH OIL] [Concomitant]
     Dosage: 300 MILLIGRAM, QD
     Route: 048
  28. TRIPLE FLEX [CHONDROITIN SULFATE;GLUCOSAMINE HYDROCHLORIDE;METHYLSULFO [Concomitant]
     Route: 048
  29. ACTIGALL [Concomitant]
     Active Substance: URSODIOL
     Dosage: UNK
  30. GLUCOTROL [Concomitant]
     Active Substance: GLIPIZIDE
     Dosage: 5 MILLIGRAM, QD
     Route: 048
  31. LIPITOR [Concomitant]
     Active Substance: ATORVASTATIN CALCIUM
     Dosage: 40 MILLIGRAM, QHS
  32. LOPRESSOR [Concomitant]
     Active Substance: METOPROLOL TARTRATE
     Dosage: 50 MILLIGRAM, BID
     Route: 048
  33. PROTONIX [Concomitant]
     Active Substance: PANTOPRAZOLE SODIUM
     Dosage: 40 MILLIGRAM, BID
     Route: 048

REACTIONS (22)
  - Carbon dioxide abnormal [Unknown]
  - Joint range of motion decreased [Unknown]
  - Blood alkaline phosphatase increased [Unknown]
  - Pain [Unknown]
  - Diarrhoea [Not Recovered/Not Resolved]
  - Polypectomy [Recovered/Resolved]
  - Aspiration pleural cavity [Recovered/Resolved]
  - Oxygen therapy [Recovered/Resolved]
  - Enema administration [Unknown]
  - Bedridden [Unknown]
  - Ketonuria [Unknown]
  - Colonoscopy [Recovered/Resolved]
  - Respiratory failure [Recovered/Resolved]
  - Decreased activity [Unknown]
  - General physical health deterioration [Unknown]
  - Gastrointestinal pain [Unknown]
  - Haemorrhoids [Unknown]
  - Pneumonia [Recovered/Resolved]
  - Constipation [Unknown]
  - Pulmonary oedema [Recovered/Resolved]
  - Pleural effusion [Recovered/Resolved]
  - Proteinuria [Unknown]

NARRATIVE: CASE EVENT DATE: 2020
